FAERS Safety Report 5751650-1 (Version None)
Quarter: 2008Q2

REPORT INFORMATION
  Report Type: 
  Country: None (occurrence: None)
  Receive Date: 20080528
  Receipt Date: 20080521
  Transmission Date: 20081010
  Serious: Yes (Other)
  Sender: FDA-Public Use
  Company Number: PHHY2008FI08635

PATIENT
  Age: 50 Year
  Sex: Female
  Weight: 60 kg

DRUGS (3)
  1. MIACALCIN [Suspect]
     Indication: HYPERCALCAEMIA
     Dosage: 500 IU/DAY
  2. ZOMETA [Concomitant]
     Indication: HYPERCALCAEMIA
     Dosage: 4 MG, UNK
     Dates: start: 20080519
  3. AREDIA [Concomitant]

REACTIONS (2)
  - HYPERCALCAEMIA [None]
  - SURGERY [None]
